FAERS Safety Report 7996497-0 (Version None)
Quarter: 2011Q4

REPORT INFORMATION
  Report Type: 
  Country: None (occurrence: None)
  Receive Date: 20111220
  Receipt Date: 20111215
  Transmission Date: 20120403
  Serious: Yes (Other)
  Sender: FDA-Public Use
  Company Number: US-ASTRAZENECA-2011SE75874

PATIENT
  Sex: Male

DRUGS (1)
  1. NEXIUM [Suspect]
     Route: 048

REACTIONS (5)
  - TERMINAL STATE [None]
  - HYDROCEPHALUS [None]
  - COLLAGEN DISORDER [None]
  - INTRACRANIAL HYPOTENSION [None]
  - ASTHMA [None]
